FAERS Safety Report 9208791 (Version 2)
Quarter: 2013Q3

REPORT INFORMATION
  Report Type: Spontaneous
  Country: US (occurrence: US)
  Receive Date: 20130404
  Receipt Date: 20130814
  Transmission Date: 20140515
  Serious: Yes (Death)
  Sender: FDA-Public Use
  Company Number: US-PFIZER INC-2013105320

PATIENT
  Age: 88 Year
  Sex: Male

DRUGS (6)
  1. SUTENT [Suspect]
     Indication: RENAL CELL CARCINOMA
     Dosage: UNK MG, UNK
     Dates: start: 20130305
  2. ATENOLOL [Concomitant]
     Dosage: UNK
  3. FINASTERIDE [Concomitant]
     Dosage: UNK
  4. FUROSEMIDE [Concomitant]
     Dosage: UNK
  5. LOVASTATIN [Concomitant]
     Dosage: UNK
  6. TAMSULOSIN HCI [Concomitant]
     Dosage: UNK

REACTIONS (7)
  - Death [Fatal]
  - Diarrhoea [Unknown]
  - Vomiting [Unknown]
  - Asthenia [Unknown]
  - Dizziness [Unknown]
  - Blood cholesterol increased [Unknown]
  - Blood pressure fluctuation [Unknown]
